FAERS Safety Report 19359374 (Version 1)
Quarter: 2021Q2

REPORT INFORMATION
  Report Type: Spontaneous
  Country: FR (occurrence: FR)
  Receive Date: 20210602
  Receipt Date: 20210602
  Transmission Date: 20210717
  Serious: Yes (Death)
  Sender: FDA-Public Use
  Company Number: FR-MYLANLABS-2021M1032451

PATIENT
  Age: 73 Year
  Sex: Female
  Weight: 117 kg

DRUGS (1)
  1. METFORMIN [Suspect]
     Active Substance: METFORMIN HYDROCHLORIDE
     Indication: TYPE 2 DIABETES MELLITUS
     Dosage: 2 GRAM, QD
     Route: 048
     Dates: end: 202012

REACTIONS (2)
  - Lactic acidosis [Fatal]
  - Overdose [Fatal]

NARRATIVE: CASE EVENT DATE: 202012
